FAERS Safety Report 15299021 (Version 1)
Quarter: 2018Q3

REPORT INFORMATION
  Report Type: Report from Study
  Country: None (occurrence: CA)
  Receive Date: 20180821
  Receipt Date: 20180821
  Transmission Date: 20181010
  Serious: Yes (Hospitalization)
  Sender: FDA-Public Use
  Company Number: CA-ABBVIE-18K-028-2455255-00

PATIENT
  Age: 75 Year
  Sex: Female

DRUGS (3)
  1. PREDNISONE. [Concomitant]
     Active Substance: PREDNISONE
     Indication: RHEUMATOID ARTHRITIS
     Route: 065
  2. METHOTREXATE. [Concomitant]
     Active Substance: METHOTREXATE
     Indication: RHEUMATOID ARTHRITIS
     Route: 058
  3. HUMIRA [Suspect]
     Active Substance: ADALIMUMAB
     Indication: RHEUMATOID ARTHRITIS
     Route: 058
     Dates: start: 20080220

REACTIONS (5)
  - Muscular weakness [Unknown]
  - Chest discomfort [Not Recovered/Not Resolved]
  - Depression [Not Recovered/Not Resolved]
  - Gait inability [Not Recovered/Not Resolved]
  - Synovial cyst [Unknown]

NARRATIVE: CASE EVENT DATE: 201803
